FAERS Safety Report 9028561 (Version 2)
Quarter: 2013Q1

REPORT INFORMATION
  Report Type: Spontaneous
  Country: US (occurrence: US)
  Receive Date: 20130124
  Receipt Date: 20130329
  Transmission Date: 20140127
  Serious: Yes (Hospitalization)
  Sender: FDA-Public Use
  Company Number: US-GLAXOSMITHKLINE-A1008714A

PATIENT
  Age: 56 Year
  Sex: Male

DRUGS (34)
  1. ADVAIR [Suspect]
     Indication: CHRONIC OBSTRUCTIVE PULMONARY DISEASE
     Dosage: 1PUFF TWICE PER DAY
     Route: 055
  2. ALBUTEROL [Concomitant]
  3. DOXYCYCLINE [Concomitant]
  4. CEFTIN [Concomitant]
  5. AVELOX [Concomitant]
  6. CEFPODOXIME [Concomitant]
  7. FISH OIL [Concomitant]
  8. BACLOFEN [Concomitant]
  9. BOTOX [Concomitant]
  10. CALCITONIN [Concomitant]
  11. CARBIDOPA/LEVODOPA [Concomitant]
  12. CITRACAL [Concomitant]
  13. DEXILANT [Concomitant]
  14. DIAZEPAM [Concomitant]
  15. DEPAKOTE SPRINKLES [Concomitant]
  16. FLUTICASONE NASAL [Concomitant]
  17. LYRICA [Concomitant]
  18. SINGULAIR [Concomitant]
  19. MORPHINE SULFATE [Concomitant]
  20. GUAIFENESIN [Concomitant]
  21. NORTRIPTYLINE [Concomitant]
  22. MULTIVITAMIN [Concomitant]
  23. SPIRIVA [Concomitant]
  24. TIZANIDINE [Concomitant]
  25. TRAZODONE [Concomitant]
  26. VITAMIN B COMPLEX [Concomitant]
  27. VITAMIN D [Concomitant]
  28. HYDROMORPHONE [Concomitant]
  29. SUMATRIPTAN [Concomitant]
  30. NICOTROL [Concomitant]
  31. TRIAMCINOLONE ACETONIDE [Concomitant]
  32. PSYLLIUM SEED [Concomitant]
  33. PROTOPIC [Concomitant]
  34. FINASTERIDE [Concomitant]

REACTIONS (5)
  - Pneumonia [Recovering/Resolving]
  - Respiratory tract infection [Unknown]
  - Chronic obstructive pulmonary disease [Unknown]
  - Infection [Unknown]
  - Product quality issue [Unknown]
